FAERS Safety Report 10189440 (Version 2)
Quarter: 2014Q4

REPORT INFORMATION
  Report Type: Spontaneous
  Country: FR (occurrence: FR)
  Receive Date: 20140522
  Receipt Date: 20141222
  Transmission Date: 20150528
  Serious: Yes (Death, Life-Threatening, Other)
  Sender: FDA-Public Use
  Company Number: FR-TEVA-482377ISR

PATIENT
  Age: 67 Year
  Sex: Female

DRUGS (4)
  1. CARBOPLATINE TEVA [Suspect]
     Active Substance: CARBOPLATIN
     Indication: LUNG NEOPLASM MALIGNANT
     Dosage: 328 MILLIGRAM DAILY;
     Route: 042
     Dates: start: 20140214, end: 20140214
  2. ALIMTA [Suspect]
     Active Substance: PEMETREXED DISODIUM
     Indication: LUNG NEOPLASM MALIGNANT
     Dosage: 500 MG/M2 DAILY;
     Route: 042
     Dates: start: 20140214, end: 20140214
  3. VISIPAQUE 320 MG OF IODINE/ML [Suspect]
     Active Substance: IODIXANOL
     Indication: LUNG NEOPLASM MALIGNANT
     Route: 042
     Dates: start: 20140214, end: 20140214
  4. AVASTIN [Suspect]
     Active Substance: BEVACIZUMAB
     Indication: LUNG NEOPLASM MALIGNANT
     Route: 042
     Dates: start: 20140214, end: 20140214

REACTIONS (15)
  - Vomiting [Unknown]
  - Bone marrow failure [Fatal]
  - Mucosal inflammation [Unknown]
  - Haemoptysis [Unknown]
  - Haemorrhage [Fatal]
  - Infection [Fatal]
  - Pyrexia [Fatal]
  - Anuria [Unknown]
  - Acute pulmonary oedema [Recovered/Resolved with Sequelae]
  - Acute kidney injury [Recovered/Resolved with Sequelae]
  - Skin lesion [Unknown]
  - Dehydration [Unknown]
  - Acute respiratory failure [Unknown]
  - Hyperkalaemia [Unknown]
  - Respiratory distress [Unknown]

NARRATIVE: CASE EVENT DATE: 201402
